FAERS Safety Report 9789134 (Version 1)
Quarter: 2013Q4

REPORT INFORMATION
  Report Type: Spontaneous
  Country: JP (occurrence: JP)
  Receive Date: 20131230
  Receipt Date: 20131230
  Transmission Date: 20140711
  Serious: Yes (Other)
  Sender: FDA-Public Use
  Company Number: JP-UCBSA-107487

PATIENT
  Sex: 0

DRUGS (1)
  1. E KEPPRA [Suspect]
     Route: 048

REACTIONS (1)
  - Platelet count decreased [Unknown]
